FAERS Safety Report 9813204 (Version 2)
Quarter: 2014Q3

REPORT INFORMATION
  Report Type: Spontaneous
  Country: US (occurrence: US)
  Receive Date: 20140113
  Receipt Date: 20140701
  Transmission Date: 20150326
  Serious: Yes (Other)
  Sender: FDA-Public Use
  Company Number: US-BAYER-2014-001571

PATIENT
  Age: 63 Year
  Sex: Female
  Weight: 56.69 kg

DRUGS (11)
  1. SYNTHROID [Concomitant]
     Active Substance: LEVOTHYROXINE SODIUM
     Dosage: 0.112 MG, BID
  2. LETAIRIS [Concomitant]
     Active Substance: AMBRISENTAN
     Dosage: 10 MG, QD
  3. LORAZEPAM. [Concomitant]
     Active Substance: LORAZEPAM
     Indication: SLEEP DISORDER THERAPY
     Dosage: 0.5
  4. DILTIAZEM [Concomitant]
     Active Substance: DILTIAZEM
     Dosage: 30 MG, BID
  5. OXYGEN. [Concomitant]
     Active Substance: OXYGEN
     Dosage: 3 LITERS
  6. NAPROSYN [Concomitant]
     Active Substance: NAPROXEN
     Indication: PAIN
     Dosage: 500 MG
  7. PANCREASE MT [Concomitant]
     Active Substance: PANCRELIPASE
     Dosage: 21,000 UNITS WITH MEALS
  8. TYVASO [Concomitant]
     Active Substance: TREPROSTINIL
     Dosage: 3 PUFF(S), QID
     Route: 055
  9. ADEMPAS [Suspect]
     Active Substance: RIOCIGUAT
     Indication: PULMONARY ARTERIAL HYPERTENSION
     Dosage: 0.5 MG, TID
  10. EVOXAC [Concomitant]
     Active Substance: CEVIMELINE HYDROCHLORIDE
     Indication: SALIVA ALTERED
  11. FISH OIL [Concomitant]
     Active Substance: FISH OIL

REACTIONS (6)
  - Blood pressure decreased [None]
  - Skin discolouration [None]
  - Pulmonary hypertension [Not Recovered/Not Resolved]
  - Dyspnoea [None]
  - Dizziness postural [None]
  - Nausea [None]

NARRATIVE: CASE EVENT DATE: 201312
